FAERS Safety Report 22354486 (Version 2)
Quarter: 2023Q2

REPORT INFORMATION
  Report Type: Spontaneous
  Country: PT (occurrence: PT)
  Receive Date: 20230523
  Receipt Date: 20230525
  Transmission Date: 20230722
  Serious: Yes (Other)
  Sender: FDA-Public Use
  Company Number: None

PATIENT
  Age: 74 Year
  Sex: Male
  Weight: 70 kg

DRUGS (1)
  1. ERBITUX [Suspect]
     Active Substance: CETUXIMAB
     Indication: Colorectal cancer
     Dosage: 875 MG, WEEKLY (1/W)
     Route: 042
     Dates: start: 20230426, end: 20230426

REACTIONS (3)
  - Respiratory distress [Recovered/Resolved with Sequelae]
  - Skin warm [Recovered/Resolved with Sequelae]
  - Erythema [Recovered/Resolved with Sequelae]

NARRATIVE: CASE EVENT DATE: 20230426
